FAERS Safety Report 14546747 (Version 2)
Quarter: 2018Q1

REPORT INFORMATION
  Report Type: Spontaneous
  Country: US (occurrence: US)
  Receive Date: 20180219
  Receipt Date: 20180220
  Transmission Date: 20180509
  Serious: Yes (Other)
  Sender: FDA-Public Use
  Company Number: US-PFIZER INC-2018068090

PATIENT
  Age: 5 Year
  Sex: Male

DRUGS (1)
  1. ONCOVIN [Suspect]
     Active Substance: VINCRISTINE SULFATE
     Indication: ACUTE LYMPHOCYTIC LEUKAEMIA
     Dosage: UNK (CUMULATIVE DOSES )

REACTIONS (1)
  - Neuropathy peripheral [Recovering/Resolving]
